FAERS Safety Report 19815397 (Version 1)
Quarter: 2021Q3

REPORT INFORMATION
  Report Type: Spontaneous
  Country: US (occurrence: US)
  Receive Date: 20210908
  Receipt Date: 20210908
  Transmission Date: 20211014
  Serious: No
  Sender: FDA-Public Use
  Company Number: None

PATIENT
  Sex: Female

DRUGS (1)
  1. OTEZLA [Suspect]
     Active Substance: APREMILAST
     Indication: PSORIATIC ARTHROPATHY
     Dosage: DAY 1: 10MG IN AM, DAY 2: 10MG AM AND PM, DAY 3: 10MG AM AND 20MG PM, DAY 4: 20MG AM AND PM, DAY 5: 20MG AM AND 30 MG PM THEN 30MG 2 TIMES A DAY;
     Route: 048
     Dates: start: 20210817

REACTIONS (5)
  - Drug ineffective [None]
  - Abdominal discomfort [None]
  - Hot flush [None]
  - Asthenia [None]
  - Diarrhoea [None]
